FAERS Safety Report 8231869-0 (Version None)
Quarter: 2012Q1

REPORT INFORMATION
  Report Type: 
  Country: None (occurrence: None)
  Receive Date: 20120323
  Receipt Date: 20120309
  Transmission Date: 20120608
  Serious: Yes (Other)
  Sender: FDA-Public Use
  Company Number: US-ROCHE-1011907

PATIENT
  Sex: Male
  Weight: 88.076 kg

DRUGS (1)
  1. ZELBORAF [Suspect]
     Indication: PRODUCT USED FOR UNKNOWN INDICATION
     Route: 065

REACTIONS (13)
  - DIARRHOEA [None]
  - PAIN IN EXTREMITY [None]
  - ALOPECIA [None]
  - SUNBURN [None]
  - ARTHRALGIA [None]
  - HERPES ZOSTER [None]
  - NEOPLASM [None]
  - RASH [None]
  - MYALGIA [None]
  - SKIN MASS [None]
  - FATIGUE [None]
  - SKIN PAPILLOMA [None]
  - PRURITUS [None]
